FAERS Safety Report 10865444 (Version 1)
Quarter: 2015Q1

REPORT INFORMATION
  Report Type: Report from Study
  Country: US (occurrence: US)
  Receive Date: 20150224
  Receipt Date: 20150224
  Transmission Date: 20150721
  Serious: No
  Sender: FDA-Public Use
  Company Number: US-MYLANLABS-2014M1011945

PATIENT
  Sex: Male
  Weight: 80.5 kg

DRUGS (1)
  1. AMNESTEEM [Suspect]
     Active Substance: ISOTRETINOIN
     Indication: ACNE
     Dosage: 40 MG, BID
     Route: 048
     Dates: start: 201408, end: 201411

REACTIONS (8)
  - Conjunctivitis [Recovered/Resolved]
  - Fatigue [Recovered/Resolved]
  - Blood triglycerides increased [Recovered/Resolved]
  - Lip dry [Recovered/Resolved]
  - Epistaxis [Recovered/Resolved]
  - Gingival bleeding [Recovered/Resolved]
  - Dry eye [Recovered/Resolved]
  - Dry skin [Recovered/Resolved]

NARRATIVE: CASE EVENT DATE: 2014
